FAERS Safety Report 5076534-6 (Version None)
Quarter: 2006Q3

REPORT INFORMATION
  Report Type: 
  Country: None (occurrence: None)
  Receive Date: 20060808
  Receipt Date: 20060808
  Transmission Date: 20061208
  Serious: Yes (Hospitalization)
  Sender: FDA-Public Use
  Company Number: None

PATIENT
  Age: 63 Year
  Sex: Male
  Weight: 87.1 kg

DRUGS (1)
  1. METHADONE HCL [Suspect]
     Indication: PAIN
     Dosage: 20 MG HS PO
     Route: 048

REACTIONS (9)
  - ABNORMAL BEHAVIOUR [None]
  - ACUTE PRERENAL FAILURE [None]
  - DEPRESSED LEVEL OF CONSCIOUSNESS [None]
  - DISCOMFORT [None]
  - LOSS OF CONSCIOUSNESS [None]
  - OVERDOSE [None]
  - RENAL FAILURE ACUTE [None]
  - SOMNOLENCE [None]
  - SUICIDAL IDEATION [None]
